FAERS Safety Report 5742644-0 (Version None)
Quarter: 2008Q2

REPORT INFORMATION
  Report Type: 
  Country: None (occurrence: None)
  Receive Date: 20080515
  Receipt Date: 20080515
  Transmission Date: 20081010
  Serious: Yes (Hospitalization)
  Sender: FDA-Public Use
  Company Number: None

PATIENT
  Age: 57 Year
  Sex: Female
  Weight: 48.5 kg

DRUGS (11)
  1. HUMIRA [Suspect]
     Indication: PSORIATIC ARTHROPATHY
     Dosage: Q 2WEEKS SQ
     Route: 058
     Dates: start: 20080321, end: 20080425
  2. ACTONEL [Concomitant]
  3. ADVAIR DISKUS 100/50 [Concomitant]
  4. CELEBREX [Concomitant]
  5. CHANTIX [Concomitant]
  6. CYMBALTA [Concomitant]
  7. LYRICA [Concomitant]
  8. PROTONIX [Concomitant]
  9. TRAZODONE HCL [Concomitant]
  10. VICODIN [Concomitant]
  11. VYTORIN [Concomitant]

REACTIONS (5)
  - CREPITATIONS [None]
  - DYSPNOEA [None]
  - INTERSTITIAL LUNG DISEASE [None]
  - OXYGEN SATURATION DECREASED [None]
  - PULMONARY FIBROSIS [None]
